FAERS Safety Report 13160247 (Version 4)
Quarter: 2017Q4

REPORT INFORMATION
  Report Type: Report from Study
  Country: JP (occurrence: JP)
  Receive Date: 20170127
  Receipt Date: 20171114
  Transmission Date: 20180320
  Serious: Yes (Death, Other)
  Sender: FDA-Public Use
  Company Number: JP-BRISTOL-MYERS SQUIBB COMPANY-BMS-2017-005602

PATIENT
  Age: 68 Year
  Sex: Male
  Weight: 66 kg

DRUGS (3)
  1. NIVOLUMAB [Suspect]
     Active Substance: NIVOLUMAB
     Indication: METASTATIC RENAL CELL CARCINOMA
     Dosage: 3 MG/KG, QD
     Route: 041
     Dates: start: 20161128, end: 20161128
  2. NIVOLUMAB [Suspect]
     Active Substance: NIVOLUMAB
     Indication: PRODUCT USED FOR UNKNOWN INDICATION
     Dosage: 3 MG/KG, UNK
     Route: 041
     Dates: start: 20170209, end: 20170209
  3. NIVOLUMAB [Suspect]
     Active Substance: NIVOLUMAB
     Indication: PRODUCT USED FOR UNKNOWN INDICATION
     Dosage: 3 MG/KG, QD
     Route: 041
     Dates: start: 20161212, end: 20161212

REACTIONS (3)
  - Hypothyroidism [Recovering/Resolving]
  - Malignant neoplasm progression [Fatal]
  - Cardiac failure [Unknown]

NARRATIVE: CASE EVENT DATE: 20161212
